FAERS Safety Report 7122975-2 (Version None)
Quarter: 2010Q4

REPORT INFORMATION
  Report Type: 
  Country: None (occurrence: None)
  Receive Date: 20101124
  Receipt Date: 20101117
  Transmission Date: 20110411
  Serious: Yes (Death, Other)
  Sender: FDA-Public Use
  Company Number: US-AMGEN-QUU435205

PATIENT

DRUGS (3)
  1. NPLATE [Suspect]
     Indication: IDIOPATHIC THROMBOCYTOPENIC PURPURA
     Dosage: 324 A?G, Q2WK
     Route: 058
     Dates: start: 20100211, end: 20100618
  2. ELOXATIN [Concomitant]
     Indication: COLON CANCER
     Dosage: UNK UNK, Q2WK
     Dates: start: 20100211, end: 20100316
  3. FLUOROURACIL                       /00098802/ [Concomitant]
     Indication: COLON CANCER
     Dosage: UNK UNK, Q2WK
     Dates: start: 20100211, end: 20100316

REACTIONS (2)
  - NEOPLASM MALIGNANT [None]
  - REFUSAL OF TREATMENT BY PATIENT [None]
